FAERS Safety Report 9324568 (Version 2)
Quarter: 2013Q4

REPORT INFORMATION
  Report Type: Spontaneous
  Country: GB (occurrence: GB)
  Receive Date: 20130603
  Receipt Date: 20131118
  Transmission Date: 20140711
  Serious: Yes (Hospitalization, Other)
  Sender: FDA-Public Use
  Company Number: GB-BAYER-2013-065780

PATIENT
  Age: 67 Year
  Sex: Female

DRUGS (4)
  1. ACETYLSALICYLIC ACID (} 100 MG) [Suspect]
     Indication: ACUTE CORONARY SYNDROME
     Dosage: 75 MG, QD
     Route: 048
  2. TICAGRELOR [Suspect]
     Indication: ACUTE CORONARY SYNDROME
     Dosage: 90 MG, BID
     Route: 048
  3. SALBUTAMOL [Concomitant]
     Route: 055
  4. TIOTROPIUM [Concomitant]
     Route: 055

REACTIONS (1)
  - Atrioventricular block [Recovered/Resolved]
